FAERS Safety Report 9115299 (Version 1)
Quarter: 2013Q1

REPORT INFORMATION
  Report Type: Spontaneous
  Country: CO (occurrence: CO)
  Receive Date: 20130225
  Receipt Date: 20130225
  Transmission Date: 20140127
  Serious: Yes (Death)
  Sender: FDA-Public Use
  Company Number: PHHY2013CO017994

PATIENT
  Age: 29 Year
  Sex: Male

DRUGS (1)
  1. TASIGNA [Suspect]
     Dosage: 150 MG, UNK
     Route: 048
     Dates: start: 20120802

REACTIONS (2)
  - Migraine [Fatal]
  - Cardio-respiratory arrest [Fatal]
